FAERS Safety Report 5175724-1 (Version None)
Quarter: 2006Q4

REPORT INFORMATION
  Report Type: 
  Country: None (occurrence: None)
  Receive Date: 20061215
  Receipt Date: 20061211
  Transmission Date: 20070319
  Serious: Yes (Life-Threatening, Hospitalization)
  Sender: FDA-Public Use
  Company Number: ES-BAYER-200616266GDS

PATIENT
  Age: 82 Year
  Sex: Male
  Weight: 105 kg

DRUGS (3)
  1. ASPIRIN [Suspect]
     Indication: DRUG USE FOR UNKNOWN INDICATION
     Route: 048
     Dates: end: 20060527
  2. NIMOTOP [Suspect]
     Indication: DRUG USE FOR UNKNOWN INDICATION
     Route: 048
     Dates: end: 20060530
  3. NOBRITOL (MEDAZEPAM AMITRIPTILIN) [Suspect]
     Indication: DRUG USE FOR UNKNOWN INDICATION
     Route: 065
     Dates: end: 20060530

REACTIONS (3)
  - COAGULOPATHY [None]
  - HAEMATOMA [None]
  - HAEMORRHAGE [None]
